FAERS Safety Report 5132188-1 (Version None)
Quarter: 2006Q4

REPORT INFORMATION
  Report Type: 
  Country: None (occurrence: None)
  Receive Date: 20061017
  Receipt Date: 20061010
  Transmission Date: 20070319
  Serious: Yes (Hospitalization, Other)
  Sender: FDA-Public Use
  Company Number: S06-USA-03509-01

PATIENT
  Age: 57 Year
  Sex: Female
  Weight: 59.8748 kg

DRUGS (9)
  1. LEXAPRO [Suspect]
     Indication: DEPRESSION
     Dosage: 20 MG QD PO
     Route: 048
     Dates: start: 20051209, end: 20060828
  2. DILANTIN [Suspect]
     Indication: CONVULSION
     Dosage: 300 MG
  3. DILANTIN [Suspect]
     Indication: CONVULSION
     Dosage: 200 MG
  4. VERAPAMIL [Concomitant]
  5. ZOCOR [Concomitant]
  6. TRAZODONE HCL [Concomitant]
  7. ZANTAC [Concomitant]
  8. TRICOR [Concomitant]
  9. TOPAMAX [Concomitant]

REACTIONS (9)
  - ANOREXIA [None]
  - ANTICONVULSANT DRUG LEVEL BELOW THERAPEUTIC [None]
  - CHRONIC OBSTRUCTIVE PULMONARY DISEASE [None]
  - CONVULSION [None]
  - DRUG TOXICITY [None]
  - ENURESIS [None]
  - ISCHAEMIC CEREBRAL INFARCTION [None]
  - SOMNOLENCE [None]
  - STATUS EPILEPTICUS [None]
